FAERS Safety Report 5203511-4 (Version None)
Quarter: 2007Q1

REPORT INFORMATION
  Report Type: 
  Country: None (occurrence: None)
  Receive Date: 20070110
  Receipt Date: 20070102
  Transmission Date: 20070707
  Serious: Yes (Hospitalization)
  Sender: FDA-Public Use
  Company Number: 2006CG02007

PATIENT
  Age: 19 Year
  Sex: Female
  Weight: 62 kg

DRUGS (15)
  1. DIPRIVAN [Suspect]
     Indication: ANAESTHESIA
     Route: 042
     Dates: start: 20061202, end: 20061202
  2. PROPOFOL LIPURO [Concomitant]
     Indication: INDUCTION OF ANAESTHESIA
     Route: 042
     Dates: start: 20061202, end: 20061202
  3. CELOCURINE [Concomitant]
     Indication: INDUCTION OF ANAESTHESIA
     Route: 042
     Dates: start: 20061202, end: 20061202
  4. ATRACURIUM BESYLATE [Concomitant]
     Indication: INDUCTION OF ANAESTHESIA
     Route: 042
     Dates: start: 20061202, end: 20061202
  5. SUFENTA [Concomitant]
     Indication: INDUCTION OF ANAESTHESIA
     Dosage: INDUCTION
     Route: 042
     Dates: start: 20061202, end: 20061202
  6. SUFENTA [Concomitant]
     Indication: ANAESTHESIA
     Dosage: INDUCTION
     Route: 042
     Dates: start: 20061202, end: 20061202
  7. SUFENTA [Concomitant]
     Dosage: ANAESTHESIA
     Route: 042
     Dates: start: 20061202, end: 20061202
  8. SUFENTA [Concomitant]
     Dosage: ANAESTHESIA
     Route: 042
     Dates: start: 20061202, end: 20061202
  9. SUFENTA [Concomitant]
     Dosage: ANAESTHESIA
     Route: 042
     Dates: start: 20061202, end: 20061202
  10. SUFENTA [Concomitant]
     Dosage: ANAESTHESIA
     Route: 042
     Dates: start: 20061202, end: 20061202
  11. SUFENTA [Concomitant]
     Dosage: ANAESTHESIA
     Route: 042
     Dates: start: 20061202, end: 20061202
  12. SUFENTA [Concomitant]
     Dosage: ANAESTHESIA
     Route: 042
     Dates: start: 20061202, end: 20061202
  13. TRAMADOL HCL [Concomitant]
     Dates: start: 20061202, end: 20061202
  14. PROPACETAMOL [Concomitant]
     Dates: start: 20061202, end: 20061202
  15. MIDAZOLAM HYDROCHLORIDE [Concomitant]
     Dates: start: 20061202, end: 20061202

REACTIONS (2)
  - ANAESTHETIC COMPLICATION [None]
  - PHARMACEUTICAL PRODUCT COMPLAINT [None]
